FAERS Safety Report 4900834-0 (Version None)
Quarter: 2006Q1

REPORT INFORMATION
  Report Type: 
  Country: None (occurrence: None)
  Receive Date: 20060201
  Receipt Date: 20050519
  Transmission Date: 20060701
  Serious: Yes (Other)
  Sender: FDA-Public Use
  Company Number: GB200601003812

PATIENT
  Age: 38 Year
  Sex: Female

DRUGS (1)
  1. FLUOXETINE [Suspect]
     Dates: start: 20050401

REACTIONS (4)
  - ARTHRALGIA [None]
  - MYALGIA [None]
  - SYNOVITIS [None]
  - URTICARIA [None]
